FAERS Safety Report 4507714-3 (Version None)
Quarter: 2004Q4

REPORT INFORMATION
  Report Type: 
  Country: None (occurrence: None)
  Receive Date: 20041015
  Receipt Date: 20030819
  Transmission Date: 20050328
  Serious: Yes (Hospitalization, Other)
  Sender: FDA-Public Use
  Company Number: 2003035148

PATIENT
  Sex: Male
  Weight: 71.6683 kg

DRUGS (9)
  1. NEURONTIN [Suspect]
     Indication: CONVULSION
     Dosage: 1800 MG (TID), ORAL
     Route: 048
     Dates: start: 20000101
  2. LEVETIRACETAM [Concomitant]
  3. GALANTAMINE (GALANTAMINE) [Concomitant]
  4. FAMOTIDINE [Concomitant]
  5. SIMVASTATIN [Concomitant]
  6. FOLIC ACID [Concomitant]
  7. CELECOXIB (CELECOXIB) [Concomitant]
  8. MULTIVITAMINS (ERGOCALCIFEROL, ASCORBIC ACID, FOLIC ACID, THIAMINE HYD [Concomitant]
  9. ASPIRIN [Concomitant]

REACTIONS (4)
  - AMNESIA [None]
  - BODY HEIGHT DECREASED [None]
  - CEREBROVASCULAR ACCIDENT [None]
  - CONVULSION [None]
